FAERS Safety Report 23586476 (Version 1)
Quarter: 2024Q1

REPORT INFORMATION
  Report Type: Report from Study
  Country: CA (occurrence: CA)
  Receive Date: 20240301
  Receipt Date: 20240301
  Transmission Date: 20240410
  Serious: Yes (Other)
  Sender: FDA-Public Use
  Company Number: CA-TEVA-VS-3161359

PATIENT
  Age: 51 Year
  Sex: Female

DRUGS (2)
  1. OCTREOTIDE ACETATE [Suspect]
     Active Substance: OCTREOTIDE ACETATE
     Indication: Carcinoid tumour
     Dosage: TIME INTERVAL: 0.33333333 DAYS
     Route: 058
  2. SANDOSTATIN [Suspect]
     Active Substance: OCTREOTIDE ACETATE
     Indication: Gastroenteropancreatic neuroendocrine tumour disease
     Route: 030

REACTIONS (5)
  - Adrenal insufficiency [Unknown]
  - Injection site warmth [Unknown]
  - Malignant neoplasm progression [Unknown]
  - Gastroenteropancreatic neuroendocrine tumour disease [Unknown]
  - Injection site induration [Unknown]
